FAERS Safety Report 24319677 (Version 3)
Quarter: 2025Q3

REPORT INFORMATION
  Report Type: Spontaneous
  Country: US (occurrence: US)
  Receive Date: 20240914
  Receipt Date: 20250810
  Transmission Date: 20251020
  Serious: No
  Sender: ALEXION PHARMACEUTICALS
  Company Number: 2024A208098

PATIENT
  Age: 64 Year
  Sex: Female

DRUGS (1)
  1. BREZTRI [Suspect]
     Active Substance: BUDESONIDE\FORMOTEROL\GLYCOPYRROLATE
     Dosage: 160 MICROGRAM, BID, I TWO PUFFS TWICE A DAY
     Dates: start: 202312

REACTIONS (7)
  - Wrong technique in device usage process [Unknown]
  - Product dose omission issue [Unknown]
  - Illness [Unknown]
  - Fatigue [Unknown]
  - Off label use [Unknown]
  - Speech disorder [Unknown]
  - Device malfunction [Unknown]

NARRATIVE: CASE EVENT DATE: 20240911
